FAERS Safety Report 18198553 (Version 1)
Quarter: 2020Q3

REPORT INFORMATION
  Report Type: Spontaneous
  Country: MA (occurrence: MA)
  Receive Date: 20200826
  Receipt Date: 20200826
  Transmission Date: 20201103
  Serious: Yes (Other)
  Sender: FDA-Public Use
  Company Number: MA-MYLANLABS-2020M1074132

PATIENT
  Age: 41 Year
  Sex: Male

DRUGS (3)
  1. INSULIN GLARGINE [Suspect]
     Active Substance: INSULIN GLARGINE
     Indication: DIABETES MELLITUS
     Dosage: UNK
     Route: 065
  2. RIFAMPICIN [Suspect]
     Active Substance: RIFAMPIN
     Indication: TUBERCULOSIS
     Dosage: UNK
     Route: 065
  3. ISONIAZID. [Suspect]
     Active Substance: ISONIAZID
     Indication: TUBERCULOSIS
     Dosage: UNK
     Route: 065

REACTIONS (10)
  - Lichenoid keratosis [Recovered/Resolved with Sequelae]
  - Anonychia [Not Recovered/Not Resolved]
  - Paronychia [Unknown]
  - Nail discolouration [Unknown]
  - Drug eruption [Recovered/Resolved with Sequelae]
  - Onycholysis [Unknown]
  - Nail pterygium [Not Recovered/Not Resolved]
  - Cheilitis [Recovered/Resolved with Sequelae]
  - Nail dystrophy [Unknown]
  - Post inflammatory pigmentation change [Not Recovered/Not Resolved]
